FAERS Safety Report 16570114 (Version 2)
Quarter: 2019Q3

REPORT INFORMATION
  Report Type: Spontaneous
  Country: BR (occurrence: BR)
  Receive Date: 20190715
  Receipt Date: 20190911
  Transmission Date: 20191004
  Serious: Yes (Other)
  Sender: FDA-Public Use
  Company Number: BR-BIOGEN-2019BI00762751

PATIENT
  Sex: Male

DRUGS (1)
  1. DIPIRONE [Suspect]
     Active Substance: METAMIZOLE SODIUM
     Indication: HEADACHE
     Route: 065

REACTIONS (2)
  - Abdominal pain upper [Unknown]
  - Monoplegia [Not Recovered/Not Resolved]

NARRATIVE: CASE EVENT DATE: 201906
